FAERS Safety Report 5427055-X (Version None)
Quarter: 2007Q3

REPORT INFORMATION
  Report Type: 
  Country: None (occurrence: None)
  Receive Date: 20070824
  Receipt Date: 20070824
  Transmission Date: 20080115
  Serious: Yes (Life-Threatening)
  Sender: FDA-Public Use
  Company Number: None

PATIENT
  Age: 48 Year
  Sex: Female

DRUGS (22)
  1. HALDOL [Suspect]
     Indication: AGITATION
     Dosage: 5 MG IV Q 6 HOURS PRN (5/28) 20 MG IV X 1 (5/27) 5 MG IV X 1
     Route: 042
     Dates: start: 20070526, end: 20070601
  2. SEROQUEL [Suspect]
     Dosage: 100 MG PO QD
     Route: 048
     Dates: start: 20070531
  3. MIDAZOLAM HCL [Concomitant]
  4. PROPOFOL [Concomitant]
  5. POTASSIUM CHLORIDE [Concomitant]
  6. LEVOFLOXACIN [Concomitant]
  7. DOCUSATE [Concomitant]
  8. HEPARIN [Concomitant]
  9. INSULIN [Concomitant]
  10. METOPROLOL SUCCINATE [Concomitant]
  11. SENNA [Concomitant]
  12. FUROSEMIDE [Concomitant]
  13. RANITIDINE [Concomitant]
  14. MAGNESIUM SULFATE [Concomitant]
  15. IPRATROPIUM/ALBUTEROL [Concomitant]
  16. THIAMINE [Concomitant]
  17. FOLIC ACID [Concomitant]
  18. TEN [Concomitant]
  19. VANCOMYCIN HCL [Concomitant]
  20. METRONIDAZOLE [Concomitant]
  21. CEFEPIME [Concomitant]
  22. LORAZEPAM [Concomitant]

REACTIONS (5)
  - BLOOD ALKALINE PHOSPHATASE INCREASED [None]
  - HAEMOGLOBIN DECREASED [None]
  - HEART RATE INCREASED [None]
  - NEUROLEPTIC MALIGNANT SYNDROME [None]
  - RESPIRATORY RATE INCREASED [None]
